FAERS Safety Report 13671303 (Version 1)
Quarter: 2017Q2

REPORT INFORMATION
  Report Type: Spontaneous
  Country: US (occurrence: US)
  Receive Date: 20170620
  Receipt Date: 20170620
  Transmission Date: 20170830
  Serious: No
  Sender: FDA-Public Use
  Company Number: US-ROCHE-1389813

PATIENT
  Sex: Male

DRUGS (10)
  1. LOSARTAN. [Concomitant]
     Active Substance: LOSARTAN
  2. PROCHLORPERAZINE. [Concomitant]
     Active Substance: PROCHLORPERAZINE
  3. OMEPRAZOLE. [Concomitant]
     Active Substance: OMEPRAZOLE
  4. ONDANSETRON [Concomitant]
     Active Substance: ONDANSETRON
  5. ASPIRIN. [Concomitant]
     Active Substance: ASPIRIN
  6. XELODA [Suspect]
     Active Substance: CAPECITABINE
     Indication: OESOPHAGEAL CARCINOMA
     Dosage: FOR 14 DAY.
     Route: 048
     Dates: start: 20140409
  7. ATORVASTATIN [Concomitant]
     Active Substance: ATORVASTATIN
  8. HYDROCHLOROTHIAZIDE. [Concomitant]
     Active Substance: HYDROCHLOROTHIAZIDE
  9. NORCO [Concomitant]
     Active Substance: ACETAMINOPHEN\HYDROCODONE BITARTRATE
  10. LEVOTHYROXINE. [Concomitant]
     Active Substance: LEVOTHYROXINE

REACTIONS (1)
  - Abdominal pain [Not Recovered/Not Resolved]
